FAERS Safety Report 10906226 (Version 1)
Quarter: 2015Q1

REPORT INFORMATION
  Report Type: Spontaneous
  Country: US (occurrence: US)
  Receive Date: 20150311
  Receipt Date: 20150311
  Transmission Date: 20150721
  Serious: No
  Sender: FDA-Public Use
  Company Number: US-009507513-1503USA004729

PATIENT
  Age: 88 Year
  Sex: Female

DRUGS (4)
  1. HYDROCORTONE [Suspect]
     Active Substance: HYDROCORTISONE
     Indication: MYCOSIS FUNGOIDES
     Route: 048
  2. TRIAMCINOLONE [Concomitant]
     Active Substance: TRIAMCINOLONE
     Indication: MYCOSIS FUNGOIDES
  3. BRENTUXIMAB VEDOTIN [Concomitant]
     Active Substance: BRENTUXIMAB VEDOTIN
     Indication: MYCOSIS FUNGOIDES
  4. THERAPEUTIC RADIOPHARMACEUTICAL (UNSPECIFIED) [Concomitant]
     Active Substance: UNSPECIFIED INGREDIENT
     Indication: MYCOSIS FUNGOIDES

REACTIONS (1)
  - Drug ineffective [Unknown]
